FAERS Safety Report 4876615-3 (Version None)
Quarter: 2006Q1

REPORT INFORMATION
  Report Type: 
  Country: None (occurrence: None)
  Receive Date: 20060109
  Receipt Date: 20060109
  Transmission Date: 20060701
  Serious: Yes (Other)
  Sender: FDA-Public Use
  Company Number: None

PATIENT
  Age: 65 Year
  Sex: Male
  Weight: 158.759 kg

DRUGS (1)
  1. BYETTA [Suspect]
     Indication: DIABETES MELLITUS
     Dosage: 5 MCG/DOSE TWICE PER DAY SQ
     Route: 058
     Dates: start: 20051119, end: 20060103

REACTIONS (1)
  - VISUAL ACUITY REDUCED [None]
